FAERS Safety Report 18586466 (Version 1)
Quarter: 2020Q4

REPORT INFORMATION
  Report Type: Spontaneous
  Country: US (occurrence: US)
  Receive Date: 20201204
  Receipt Date: 20201204
  Transmission Date: 20210114
  Serious: Yes (Hospitalization)
  Sender: FDA-Public Use
  Company Number: None

PATIENT
  Age: 50 Year
  Sex: Male

DRUGS (1)
  1. DEFERASIROX 360MG ZYDUS PHARMACEUTICALS (USA) [Suspect]
     Active Substance: DEFERASIROX
     Indication: IRON METABOLISM DISORDER
     Route: 048
     Dates: start: 202001

REACTIONS (1)
  - Sickle cell anaemia [None]

NARRATIVE: CASE EVENT DATE: 202011
